FAERS Safety Report 6622186-0 (Version None)
Quarter: 2010Q1

REPORT INFORMATION
  Report Type: 
  Country: None (occurrence: None)
  Receive Date: 20100309
  Receipt Date: 20100223
  Transmission Date: 20100710
  Serious: Yes (Hospitalization)
  Sender: FDA-Public Use
  Company Number: US-MYLANLABS-2010S1002919

PATIENT
  Age: 48 Year
  Sex: Female
  Weight: 57 kg

DRUGS (2)
  1. PHENYTOIN [Suspect]
     Indication: EPILEPSY
     Dosage: 300 MG/DAY
  2. CARBAMAZEPINE [Concomitant]
     Indication: EPILEPSY
     Dosage: 500 MG/DAY

REACTIONS (2)
  - INTERSTITIAL LUNG DISEASE [None]
  - SYSTEMIC LUPUS ERYTHEMATOSUS [None]
